FAERS Safety Report 4629021-0 (Version None)
Quarter: 2005Q2

REPORT INFORMATION
  Report Type: 
  Country: None (occurrence: None)
  Receive Date: 20050407
  Receipt Date: 20050228
  Transmission Date: 20051028
  Serious: Yes (Death)
  Sender: FDA-Public Use
  Company Number: GB-BOEHRINGER INGELHEIM PHARMACEUTICALS, INC.-2005-UK-00349UK

PATIENT
  Sex: Male

DRUGS (8)
  1. TIOTROPIUM (00015/0190/A) [Suspect]
     Route: 055
  2. SALMETEROL XINAFOATE [Concomitant]
     Route: 055
  3. MONTELUKAST SODIUM [Concomitant]
     Dosage: ONE TABLET AT NIGHT
  4. QUININE BISULPHATE [Concomitant]
     Dosage: ONE AT NIGHT AS REQUIRED
  5. BECLOMETHASONE DIPROPIONATE [Concomitant]
  6. SALBUTAMOL CFC FREE INHALER [Concomitant]
     Route: 055
  7. SERETIDE 125 EVOHALER CFC  FREE INHALER [Concomitant]
     Dosage: 2 TWICE DAILY
     Route: 055
  8. OXYGEN [Concomitant]
     Dosage: 2 LITRES PER MINUTE FOR 15HOURS

REACTIONS (2)
  - CHRONIC OBSTRUCTIVE PULMONARY DISEASE [None]
  - DIARRHOEA [None]
